FAERS Safety Report 8907205 (Version 1)
Quarter: 2012Q4

REPORT INFORMATION
  Report Type: 
  Country: CA (occurrence: CA)
  Receive Date: 20121114
  Receipt Date: 20121114
  Transmission Date: 20130627
  Serious: Yes (Hospitalization)
  Sender: FDA-Public Use
  Company Number: PHBS2001CA12859

PATIENT
  Age: 84 Year
  Sex: Male

DRUGS (7)
  1. EXELON [Suspect]
     Indication: DEMENTIA ALZHEIMER^S TYPE
     Dosage: 4.5 mg, BID
     Route: 048
     Dates: start: 20010312
  2. EXELON [Suspect]
     Dosage: UNK
     Route: 048
     Dates: start: 20010312
  3. EXELON [Suspect]
     Dosage: 3 mg, BID
     Route: 048
     Dates: start: 20010312
  4. CELEXA [Concomitant]
     Dosage: 20 mg, QD
  5. FLUTAMIDE [Concomitant]
     Dosage: 250 mg, BID
  6. RISPERIDONE [Concomitant]
     Dosage: .5 mg, BID
  7. ACETYLSALICYLIC ACID ENTERIC COATED [Concomitant]
     Dosage: 81 mg, QID

REACTIONS (4)
  - Confusional state [Recovered/Resolved]
  - Aggression [Recovered/Resolved]
  - Nightmare [Recovered/Resolved]
  - Insomnia [Recovered/Resolved]
